FAERS Safety Report 6957926-4 (Version None)
Quarter: 2010Q3

REPORT INFORMATION
  Report Type: 
  Country: None (occurrence: None)
  Receive Date: 20100830
  Receipt Date: 20100830
  Transmission Date: 20110219
  Serious: Yes (Death)
  Sender: FDA-Public Use
  Company Number: None

PATIENT
  Age: 56 Year
  Sex: Female
  Weight: 63.9572 kg

DRUGS (1)
  1. DURAGESIC-100 [Suspect]
     Indication: BACK PAIN
     Dosage: TWO PATCHES EVERY THREE DAYS TRANSDERMAL
     Route: 062
     Dates: start: 20000101, end: 20100425

REACTIONS (4)
  - ANALGESIC DRUG LEVEL ABOVE THERAPEUTIC [None]
  - CARDIAC ARREST [None]
  - MALAISE [None]
  - PRODUCT SUBSTITUTION ISSUE [None]
